APPROVED DRUG PRODUCT: MENADIONE
Active Ingredient: MENADIONE
Strength: 5MG
Dosage Form/Route: TABLET;ORAL
Application: N002139 | Product #003
Applicant: ELI LILLY AND CO
Approved: Approved Prior to Jan 1, 1982 | RLD: No | RS: No | Type: DISCN